FAERS Safety Report 5670311-0 (Version None)
Quarter: 2008Q1

REPORT INFORMATION
  Report Type: 
  Country: None (occurrence: None)
  Receive Date: 20080314
  Receipt Date: 20080314
  Transmission Date: 20080703
  Serious: No
  Sender: FDA-Public Use
  Company Number: None

PATIENT
  Age: 64 Year
  Sex: Male
  Weight: 90.7 kg

DRUGS (1)
  1. VARENICLINE [Suspect]
     Indication: HYPERTENSION
     Dosage: 1MG BID PO
     Route: 048
     Dates: start: 20070815, end: 20080219

REACTIONS (1)
  - AGITATION [None]
